FAERS Safety Report 4850714-4 (Version None)
Quarter: 2005Q4

REPORT INFORMATION
  Report Type: 
  Country: None (occurrence: None)
  Receive Date: 20051208
  Receipt Date: 20051128
  Transmission Date: 20060501
  Serious: Yes (Hospitalization)
  Sender: FDA-Public Use
  Company Number: 2005161924

PATIENT
  Age: 79 Year
  Sex: Male
  Weight: 48 kg

DRUGS (9)
  1. IRINOTECAN HCL [Suspect]
     Indication: GASTRIC CANCER RECURRENT
     Dosage: 100 MG (INTERMITTENT) INTRAVENOUS
     Route: 042
     Dates: start: 20050303, end: 20050622
  2. TEGAFUR/GIMERACIL/OTERACIL POTASSIUM [Suspect]
     Indication: GASTRIC CANCER RECURRENT
     Dosage: 100 MG (50 MG 2 IN 1 D ORAL); 80 MG (80 MG 1 IN 1 D) ORAL
     Route: 048
     Dates: start: 20040628, end: 20041222
  3. TEGAFUR/GIMERACIL/OTERACIL POTASSIUM [Suspect]
     Indication: GASTRIC CANCER RECURRENT
     Dosage: 100 MG (50 MG 2 IN 1 D ORAL); 80 MG (80 MG 1 IN 1 D) ORAL
     Route: 048
     Dates: start: 20050914, end: 20051109
  4. SODIUM CHLORIDE 0.9% [Concomitant]
  5. DEXAMETHASONE SODIUM PHOSPHATE [Concomitant]
  6. ALLEGRA [Concomitant]
  7. LIVOSTIN [Concomitant]
  8. CELESTAMINE TAB [Concomitant]
  9. MUCOSOLVAN                (AMBROXOL HYDROCHLORIDE) [Concomitant]

REACTIONS (1)
  - INTERSTITIAL LUNG DISEASE [None]
